FAERS Safety Report 23144403 (Version 2)
Quarter: 2023Q4

REPORT INFORMATION
  Report Type: Spontaneous
  Country: US (occurrence: US)
  Receive Date: 20231103
  Receipt Date: 20231128
  Transmission Date: 20240109
  Serious: No
  Sender: FDA-Public Use
  Company Number: US-PFIZER INC-PV202300179425

PATIENT
  Age: 54 Year
  Sex: Female

DRUGS (4)
  1. HYDROCORTISONE ACETATE [Suspect]
     Active Substance: HYDROCORTISONE ACETATE
     Indication: Psoriasis
     Dosage: UNK
     Dates: start: 2018
  2. COSENTYX [Concomitant]
     Active Substance: SECUKINUMAB
     Dosage: UNK
  3. CLOBETASOL [Concomitant]
     Active Substance: CLOBETASOL
     Dosage: UNK
     Route: 061
  4. FLUCONAZOLE [Concomitant]
     Active Substance: FLUCONAZOLE
     Dosage: UNK

REACTIONS (2)
  - Drug ineffective [Unknown]
  - Liver function test increased [Unknown]
